FAERS Safety Report 6974497-7 (Version None)
Quarter: 2010Q3

REPORT INFORMATION
  Report Type: 
  Country: None (occurrence: None)
  Receive Date: 20100909
  Receipt Date: 20100901
  Transmission Date: 20110219
  Serious: Yes (Hospitalization, Other)
  Sender: FDA-Public Use
  Company Number: US-MERCK-0907USA02923

PATIENT
  Age: 59 Year
  Sex: Female
  Weight: 69 kg

DRUGS (1)
  1. FOSAMAX [Suspect]
     Indication: OSTEOPOROSIS
     Route: 048
     Dates: start: 20001101, end: 20020101

REACTIONS (46)
  - ABDOMINAL ABSCESS [None]
  - ABDOMINAL ADHESIONS [None]
  - ABDOMINAL PAIN [None]
  - ADHESION [None]
  - AORTIC ARTERIOSCLEROSIS [None]
  - ATELECTASIS [None]
  - BILIARY DILATATION [None]
  - BLOOD CHOLESTEROL INCREASED [None]
  - CHEST PAIN [None]
  - DENTAL CARIES [None]
  - DIZZINESS [None]
  - EDENTULOUS [None]
  - ELECTROCARDIOGRAM ST-T CHANGE [None]
  - FALL [None]
  - FOOT FRACTURE [None]
  - GASTROOESOPHAGEAL REFLUX DISEASE [None]
  - GRANULOMA [None]
  - HERNIA [None]
  - HYPERLIPIDAEMIA [None]
  - HYPERTENSION [None]
  - HYPOKALAEMIA [None]
  - IMPAIRED HEALING [None]
  - LEUKOCYTOSIS [None]
  - LIMB INJURY [None]
  - LUNG DISORDER [None]
  - NECK PAIN [None]
  - ORAL INFECTION [None]
  - OSTEONECROSIS OF JAW [None]
  - OSTEOPENIA [None]
  - OSTEORADIONECROSIS [None]
  - PAIN [None]
  - PAIN IN EXTREMITY [None]
  - PAIN IN JAW [None]
  - PARAESTHESIA [None]
  - PNEUMONIA [None]
  - RIB FRACTURE [None]
  - SLEEP APNOEA SYNDROME [None]
  - SMALL INTESTINAL OBSTRUCTION [None]
  - SPLENIC INJURY [None]
  - STAPHYLOCOCCAL ABSCESS [None]
  - STAPHYLOCOCCAL INFECTION [None]
  - STOMATITIS [None]
  - TOOTH DISORDER [None]
  - TOOTHACHE [None]
  - UTERINE DISORDER [None]
  - VARICOSE VEIN [None]
